FAERS Safety Report 5505610-6 (Version None)
Quarter: 2007Q4

REPORT INFORMATION
  Report Type: 
  Country: None (occurrence: None)
  Receive Date: 20071102
  Receipt Date: 20071023
  Transmission Date: 20080405
  Serious: Yes (Death, Life-Threatening, Hospitalization)
  Sender: FDA-Public Use
  Company Number: FR-PFIZER INC-2007089040

PATIENT
  Sex: Male

DRUGS (7)
  1. TRIFLUCAN [Suspect]
     Route: 048
  2. ATAZANAVIR SULFATE [Suspect]
     Indication: HIV TEST POSITIVE
     Route: 048
  3. ESOMEPRAZOLE [Suspect]
     Indication: ULCER
     Route: 048
  4. ABACAVIR SULFATE LAMIVUDINE AND ZIDOVUDINE [Concomitant]
     Route: 048
  5. CO-TRIMOXAZOLE [Concomitant]
     Route: 048
  6. DEPAKINE CHRONO [Concomitant]
     Route: 048
  7. CITALOPRAM HYDROBROMIDE [Concomitant]
     Route: 048

REACTIONS (2)
  - DEATH [None]
  - HYPERCALCIURIA [None]
